FAERS Safety Report 9726915 (Version 1)
Quarter: 2013Q4

REPORT INFORMATION
  Report Type: Spontaneous
  Country: CA (occurrence: CA)
  Receive Date: 20131203
  Receipt Date: 20131203
  Transmission Date: 20140711
  Serious: Yes (Hospitalization, Other)
  Sender: FDA-Public Use
  Company Number: CA-BAYER-2013-145654

PATIENT
  Age: 31 Year
  Sex: Female
  Weight: 85 kg

DRUGS (6)
  1. MIRENA [Suspect]
     Dosage: 20 ?G/D, CONT
     Route: 015
  2. ACETAMINOPHEN [Concomitant]
  3. CEFTRIAXONE [Concomitant]
  4. DOXYCYCLINE [Concomitant]
  5. IBUPROFEN [Concomitant]
  6. METRONIDAZOLE [Concomitant]

REACTIONS (7)
  - Abdominal discomfort [None]
  - Abdominal pain [None]
  - Candida infection [None]
  - Feeling abnormal [None]
  - Haemoglobin decreased [None]
  - Genital haemorrhage [None]
  - Pyrexia [None]
